FAERS Safety Report 10971005 (Version 4)
Quarter: 2015Q3

REPORT INFORMATION
  Report Type: Report from Study
  Country: US (occurrence: US)
  Receive Date: 20150331
  Receipt Date: 20150915
  Transmission Date: 20151125
  Serious: Yes (Hospitalization, Other)
  Sender: FDA-Public Use
  Company Number: PHEH2015US000952

PATIENT
  Age: 2 Year
  Sex: Male

DRUGS (5)
  1. AFINITOR [Suspect]
     Active Substance: EVEROLIMUS
     Indication: GANGLIOGLIOMA
     Dosage: UNK
     Route: 048
     Dates: start: 20140908, end: 20141121
  2. DEPAKOTE [Concomitant]
     Active Substance: DIVALPROEX SODIUM
     Indication: PRODUCT USED FOR UNKNOWN INDICATION
     Route: 065
  3. AFINITOR [Suspect]
     Active Substance: EVEROLIMUS
     Dosage: 2 MG ALTERNATING WITH 4 MG, QOD
     Route: 048
     Dates: start: 20141205
  4. L-LYSINE [Concomitant]
     Active Substance: LYSINE
     Indication: PROPHYLAXIS
     Route: 065
  5. AFINITOR [Suspect]
     Active Substance: EVEROLIMUS
     Dosage: 2 MG, QD
     Route: 048
     Dates: end: 20150520

REACTIONS (13)
  - Screaming [Unknown]
  - Vomiting [Unknown]
  - Rhinorrhoea [Recovering/Resolving]
  - Pyrexia [Recovering/Resolving]
  - Autism [Recovering/Resolving]
  - Decreased appetite [Recovering/Resolving]
  - Abnormal behaviour [Recovering/Resolving]
  - Malaise [Unknown]
  - Cough [Recovering/Resolving]
  - Liver disorder [Unknown]
  - Seizure [Unknown]
  - Nasal congestion [Unknown]
  - Agitation [Unknown]

NARRATIVE: CASE EVENT DATE: 20141121
